FAERS Safety Report 5483977-5 (Version None)
Quarter: 2007Q4

REPORT INFORMATION
  Report Type: 
  Country: None (occurrence: None)
  Receive Date: 20071012
  Receipt Date: 20071001
  Transmission Date: 20080405
  Serious: Yes (Hospitalization)
  Sender: FDA-Public Use
  Company Number: US-ROCHE-510818

PATIENT
  Age: 44 Year
  Sex: Female
  Weight: 94.1 kg

DRUGS (8)
  1. PEG-INTERFERON ALFA 2A (RO 25-8310) [Suspect]
     Dosage: FORM REPORTED AS LIQUID.
     Route: 058
     Dates: start: 20070508
  2. RIBAVIRIN [Suspect]
     Dosage: DOSE BLINDED.
     Route: 048
     Dates: start: 20070508
  3. ALBUTEROL [Concomitant]
     Dates: start: 20070430
  4. TYLENOL (CAPLET) [Concomitant]
     Dates: start: 20070508
  5. CLARITIN [Concomitant]
     Dates: start: 20060101
  6. SOMINEX [Concomitant]
     Dates: start: 20070517
  7. BENADRYL [Concomitant]
     Dates: start: 20070530
  8. HYDROCORTISONE CREAM [Concomitant]
     Dates: start: 20070630

REACTIONS (2)
  - CALCULUS URETERIC [None]
  - PYELONEPHRITIS [None]
